FAERS Safety Report 7919049-7 (Version None)
Quarter: 2011Q4

REPORT INFORMATION
  Report Type: 
  Country: None (occurrence: None)
  Receive Date: 20111116
  Receipt Date: 20111107
  Transmission Date: 20120403
  Serious: Yes (Disabling)
  Sender: FDA-Public Use
  Company Number: CA-ASTRAZENECA-2011SE67289

PATIENT
  Age: 50 Year
  Sex: Male
  Weight: 99.8 kg

DRUGS (4)
  1. DIOVAN [Concomitant]
  2. CRESTOR [Suspect]
     Route: 048
  3. ATIVAN [Concomitant]
  4. PREVACID [Concomitant]

REACTIONS (3)
  - CRANIAL NERVE INJURY [None]
  - DIPLOPIA [None]
  - MUSCULAR WEAKNESS [None]
